FAERS Safety Report 15855914 (Version 1)
Quarter: 2019Q1

REPORT INFORMATION
  Report Type: Report from Study
  Country: None (occurrence: IE)
  Receive Date: 20190122
  Receipt Date: 20190122
  Transmission Date: 20190417
  Serious: Yes (Hospitalization)
  Sender: FDA-Public Use
  Company Number: IE-ABBVIE-19K-229-2633565-00

PATIENT
  Sex: Male

DRUGS (1)
  1. HUMIRA [Suspect]
     Active Substance: ADALIMUMAB
     Indication: RHEUMATOID ARTHRITIS
     Route: 058
     Dates: start: 20180911, end: 20190101

REACTIONS (3)
  - Prostatic disorder [Unknown]
  - Infection [Unknown]
  - Urinary tract disorder [Unknown]

NARRATIVE: CASE EVENT DATE: 2018
